FAERS Safety Report 18072089 (Version 19)
Quarter: 2023Q2

REPORT INFORMATION
  Report Type: Spontaneous
  Country: US (occurrence: US)
  Receive Date: 20200727
  Receipt Date: 20230612
  Transmission Date: 20230722
  Serious: Yes (Other)
  Sender: FDA-Public Use
  Company Number: US-PFIZER INC-2020284404

PATIENT
  Age: 63 Year
  Sex: Female

DRUGS (1)
  1. LORBRENA [Suspect]
     Active Substance: LORLATINIB
     Indication: Lung cancer metastatic
     Dosage: 100 MG
     Dates: end: 202212

REACTIONS (10)
  - Renal disorder [Unknown]
  - Neoplasm progression [Recovered/Resolved]
  - Dyspnoea exertional [Unknown]
  - Libido decreased [Unknown]
  - Pain in extremity [Unknown]
  - Poor quality sleep [Unknown]
  - Hypersomnia [Unknown]
  - Fall [Unknown]
  - Decreased appetite [Unknown]
  - Weight increased [Unknown]

NARRATIVE: CASE EVENT DATE: 20200906
